FAERS Safety Report 7297845-X (Version None)
Quarter: 2011Q1

REPORT INFORMATION
  Report Type: 
  Country: None (occurrence: None)
  Receive Date: 20110217
  Receipt Date: 20101104
  Transmission Date: 20110831
  Serious: No
  Sender: FDA-Public Use
  Company Number: US-KINGPHARMUSA00001-K201001321

PATIENT
  Sex: Female

DRUGS (1)
  1. FLECTOR [Suspect]
     Indication: JOINT SPRAIN
     Dosage: 1 PATCH, Q12 HOURS
     Route: 061
     Dates: start: 20100902, end: 20100903

REACTIONS (10)
  - APPLICATION SITE ERYTHEMA [None]
  - APPLICATION SITE SWELLING [None]
  - CELLULITIS [None]
  - EXCORIATION [None]
  - APPLICATION SITE DISCOLOURATION [None]
  - SCRATCH [None]
  - APPLICATION SITE PAIN [None]
  - APPLICATION SITE PRURITUS [None]
  - JOINT SWELLING [None]
  - APPLICATION SITE WARMTH [None]
